FAERS Safety Report 12859595 (Version 1)
Quarter: 2016Q4

REPORT INFORMATION
  Report Type: Report from Study
  Country: US (occurrence: US)
  Receive Date: 20161018
  Receipt Date: 20161018
  Transmission Date: 20170207
  Serious: Yes (Hospitalization)
  Sender: FDA-Public Use
  Company Number: US-ACTELION-A-NJ2016-130060

PATIENT
  Age: 81 Year
  Sex: Male

DRUGS (3)
  1. TRACLEER [Suspect]
     Active Substance: BOSENTAN
     Indication: PULMONARY ARTERIAL HYPERTENSION
     Dosage: 125 MG, BID
     Route: 048
     Dates: start: 201309
  2. TRACLEER [Suspect]
     Active Substance: BOSENTAN
     Dosage: 62.5 MG, BID
     Route: 048
     Dates: start: 20130411, end: 201309
  3. DILTIAZEM. [Concomitant]
     Active Substance: DILTIAZEM

REACTIONS (8)
  - Hypotension [Unknown]
  - Packed red blood cell transfusion [Unknown]
  - Haemoglobin decreased [Recovered/Resolved]
  - Rectal haemorrhage [Unknown]
  - Anaemia [Recovered/Resolved]
  - Gastrointestinal haemorrhage [Recovered/Resolved]
  - Diverticulum [Unknown]
  - Dehydration [Unknown]
